FAERS Safety Report 7295263-1 (Version None)
Quarter: 2011Q1

REPORT INFORMATION
  Report Type: 
  Country: None (occurrence: None)
  Receive Date: 20110203
  Receipt Date: 20110118
  Transmission Date: 20110831
  Serious: Yes (Death)
  Sender: FDA-Public Use
  Company Number: B0695011A

PATIENT
  Age: 32 Year
  Sex: Female

DRUGS (7)
  1. CARISOPRODOL [Suspect]
  2. PHENOTHIAZNES (FORMULATION UNKNOWN) PHENOTHIAZINES) [Suspect]
  3. PROMETHAZINE [Suspect]
  4. ONDANSETRON HYDROCHLORIDE [Suspect]
     Dosage: /ORAL
     Route: 048
  5. TIZANIDINE HCL [Suspect]
     Dosage: /ORAL
     Route: 048
  6. NORTRIPTYLINE (FORMULATION UNKNOWN) (NORTRIPTYLINE) [Suspect]
  7. MIRTAZAPINE [Suspect]

REACTIONS (1)
  - INTENTIONAL DRUG MISUSE [None]
